FAERS Safety Report 23487579 (Version 2)
Quarter: 2024Q1

REPORT INFORMATION
  Report Type: Report from Study
  Country: IL (occurrence: IL)
  Receive Date: 20240206
  Receipt Date: 20240212
  Transmission Date: 20240409
  Serious: Yes (Hospitalization, Other)
  Sender: FDA-Public Use
  Company Number: IL-GLAXOSMITHKLINE-IL2024EME014792

PATIENT

DRUGS (2)
  1. MEPOLIZUMAB [Suspect]
     Active Substance: MEPOLIZUMAB
     Indication: Product used for unknown indication
     Dosage: UNK
  2. LEVOFLOXACIN [Concomitant]
     Active Substance: LEVOFLOXACIN
     Indication: Product used for unknown indication
     Dosage: 750 MG, QD, FOR 5 DAYS

REACTIONS (9)
  - Urinary tract infection [Unknown]
  - Urethral stenosis [Unknown]
  - Transurethral prostatectomy [Unknown]
  - Urinary incontinence [Unknown]
  - Dysuria [Unknown]
  - Pyrexia [Unknown]
  - Catheter site pain [Unknown]
  - Pain [Unknown]
  - Vesicoureteric reflux [Unknown]

NARRATIVE: CASE EVENT DATE: 20200601
